FAERS Safety Report 16673437 (Version 1)
Quarter: 2019Q3

REPORT INFORMATION
  Report Type: Spontaneous
  Country: US (occurrence: US)
  Receive Date: 20190806
  Receipt Date: 20190806
  Transmission Date: 20191004
  Serious: No
  Sender: FDA-Public Use
  Company Number: US-FRESENIUS KABI-FK201908593

PATIENT
  Age: 75 Year
  Sex: Male

DRUGS (2)
  1. AMIODARONE HYDROCHLORIDE. [Suspect]
     Active Substance: AMIODARONE HYDROCHLORIDE
     Indication: ATRIAL FIBRILLATION
     Route: 042
     Dates: start: 20190731, end: 20190801
  2. GLUCOSE [Concomitant]
     Active Substance: DEXTROSE
     Indication: ATRIAL FIBRILLATION
     Dosage: UNKNOWN
     Route: 042
     Dates: start: 20190731, end: 20190801

REACTIONS (2)
  - Extravasation [Not Recovered/Not Resolved]
  - Product use in unapproved indication [Unknown]

NARRATIVE: CASE EVENT DATE: 20190731
